FAERS Safety Report 23549762 (Version 2)
Quarter: 2024Q3

REPORT INFORMATION
  Report Type: Spontaneous
  Country: DE (occurrence: DE)
  Receive Date: 20240221
  Receipt Date: 20240904
  Transmission Date: 20241016
  Serious: Yes (Other)
  Sender: TEVA
  Company Number: None

PATIENT
  Age: 59 Year
  Sex: Male
  Weight: 84 kg

DRUGS (5)
  1. CIPROFLOXACIN [Suspect]
     Active Substance: CIPROFLOXACIN
     Indication: Diverticulitis
     Dosage: CIPROFLOXACIN 750 MG, TWICE DAILY, PLANNED FOR 10 DAYS (PREMATURELY STOPPED)
     Route: 048
     Dates: start: 20120112, end: 20120115
  2. CIPRO [Suspect]
     Active Substance: CIPROFLOXACIN HYDROCHLORIDE
     Indication: Diverticulitis
     Route: 048
     Dates: start: 20120112, end: 20120115
  3. MARCUMAR [Concomitant]
     Active Substance: PHENPROCOUMON
     Indication: Deep vein thrombosis
     Dosage: 3 MG
     Route: 048
     Dates: start: 200701
  4. CYANOCOBALAMIN\FOLIC ACID\PYRIDOXINE HYDROCHLORIDE [Concomitant]
     Active Substance: CYANOCOBALAMIN\FOLIC ACID\PYRIDOXINE HYDROCHLORIDE
     Indication: Hyperhomocysteinaemia
     Dosage: FORTE KAPSELN
     Route: 048
     Dates: start: 200808, end: 202011
  5. OMEPRAZOLE [Concomitant]
     Active Substance: OMEPRAZOLE
     Indication: Epigastric discomfort
     Dosage: 20 MG
     Route: 048
     Dates: start: 200602, end: 201408

REACTIONS (11)
  - Altered state of consciousness [Unknown]
  - Anxiety disorder [Recovered/Resolved]
  - Gait disturbance [Recovered/Resolved with Sequelae]
  - Hallucination [Recovered/Resolved]
  - Asthenia [Recovered/Resolved with Sequelae]
  - Gait disturbance [Recovered/Resolved with Sequelae]
  - Polyneuropathy [Recovered/Resolved with Sequelae]
  - Tendonitis [Recovered/Resolved]
  - Tendon pain [Recovered/Resolved]
  - Pain in extremity [Recovered/Resolved]
  - Hypoaesthesia [Unknown]

NARRATIVE: CASE EVENT DATE: 20120101
